FAERS Safety Report 8597496-0 (Version None)
Quarter: 2012Q3

REPORT INFORMATION
  Report Type: 
  Country: None (occurrence: None)
  Receive Date: 20120802
  Receipt Date: 20120723
  Transmission Date: 20120928
  Serious: Yes (Other)
  Sender: FDA-Public Use
  Company Number: 1206-287

PATIENT
  Age: 83 Year
  Sex: Male

DRUGS (10)
  1. LISINOPRIL [Concomitant]
  2. ASPIRIN [Suspect]
  3. LATANOPROST (LATANOPROST) (DROPS) [Concomitant]
  4. COSOPT (COSOPT) (DROPS) [Concomitant]
  5. FLUORIDE (SODIUM FLUORIDE) [Concomitant]
  6. METOPROLOL TARTRATE [Concomitant]
  7. HYDROCHLOROTHIAZIDE [Concomitant]
  8. TRAZODONE HCL [Concomitant]
  9. AMLODIPINE [Concomitant]
  10. EYLEA [Suspect]
     Indication: MACULAR DEGENERATION
     Dosage: 2 MG
     Dates: start: 20120411, end: 20120523

REACTIONS (2)
  - ENDOPHTHALMITIS [None]
  - VISUAL ACUITY REDUCED [None]
